FAERS Safety Report 21119684 (Version 1)
Quarter: 2022Q3

REPORT INFORMATION
  Report Type: Spontaneous
  Country: US (occurrence: None)
  Receive Date: 20220721
  Receipt Date: 20220721
  Transmission Date: 20221026
  Serious: Yes (Life-Threatening)
  Sender: FDA-Public Use
  Company Number: None

PATIENT
  Age: 49 Year
  Sex: Male
  Weight: 106 kg

DRUGS (2)
  1. LORAZEPAM [Suspect]
     Active Substance: LORAZEPAM
     Indication: Upper respiratory tract infection
     Dosage: 1 MG PER HOUR IV?
     Route: 042
     Dates: start: 20200512, end: 20200514
  2. REMDESIVIR [Suspect]
     Active Substance: REMDESIVIR
     Indication: Upper respiratory tract infection
     Dosage: 100 MG EVERY DAY IV?
     Route: 042
     Dates: start: 20200506, end: 20200515

REACTIONS (2)
  - Angioedema [None]
  - Rash [None]

NARRATIVE: CASE EVENT DATE: 20200514
